FAERS Safety Report 6840055-8 (Version None)
Quarter: 2010Q3

REPORT INFORMATION
  Report Type: 
  Country: None (occurrence: None)
  Receive Date: 20100713
  Receipt Date: 20100713
  Transmission Date: 20110219
  Serious: Yes (Life-Threatening, Hospitalization)
  Sender: FDA-Public Use
  Company Number: None

PATIENT
  Age: 55 Year
  Sex: Female
  Weight: 44.7 kg

DRUGS (6)
  1. ISOVUE-300 [Suspect]
     Indication: COMPUTERISED TOMOGRAM
     Dosage: 130 ML
     Dates: start: 20100226
  2. PREGABALIN [Concomitant]
  3. MORPHINE [Concomitant]
  4. DOCUSATE [Concomitant]
  5. SENNA [Concomitant]
  6. ONDANSETRON [Concomitant]

REACTIONS (11)
  - ABDOMINAL PAIN [None]
  - ANAPHYLACTIC REACTION [None]
  - CARDIOGENIC SHOCK [None]
  - CIRCULATORY COLLAPSE [None]
  - DEHYDRATION [None]
  - ELECTROMECHANICAL DISSOCIATION [None]
  - HYPOVOLAEMIC SHOCK [None]
  - NAUSEA [None]
  - RESPIRATORY DISTRESS [None]
  - URTICARIA [None]
  - VOMITING [None]
